FAERS Safety Report 19064078 (Version 1)
Quarter: 2021Q1

REPORT INFORMATION
  Report Type: Spontaneous
  Country: PL (occurrence: PL)
  Receive Date: 20210326
  Receipt Date: 20210326
  Transmission Date: 20210420
  Serious: Yes (Other)
  Sender: FDA-Public Use
  Company Number: PL-JNJFOC-20210341622

PATIENT
  Sex: Female

DRUGS (1)
  1. RIVAROXABAN [Suspect]
     Active Substance: RIVAROXABAN
     Indication: PULMONARY EMBOLISM
     Dosage: 20 MG, QD
     Route: 048
     Dates: start: 2019

REACTIONS (5)
  - Dry mouth [Unknown]
  - Haemorrhoid infection [Unknown]
  - Oedema peripheral [Unknown]
  - Pruritus [Unknown]
  - Anal haemorrhage [Unknown]
